FAERS Safety Report 26053490 (Version 1)
Quarter: 2025Q4

REPORT INFORMATION
  Report Type: Spontaneous
  Country: US (occurrence: None)
  Receive Date: 20251116
  Receipt Date: 20251116
  Transmission Date: 20260117
  Serious: Yes (Disabling)
  Sender: FDA-CTU
  Company Number: None

PATIENT
  Age: 67 Year

DRUGS (8)
  1. LANSOPRAZOLE [Suspect]
     Active Substance: LANSOPRAZOLE
     Dosage: OTHER QUANTITY : 1 CAPSULE(S);?FREQUENCY : TWICE A DAY;?
     Route: 048
  2. FAMOTIDINE [Suspect]
     Active Substance: FAMOTIDINE
  3. LEXAPRO [Concomitant]
     Active Substance: ESCITALOPRAM OXALATE
  4. LANSOPRAZOLE [Concomitant]
     Active Substance: LANSOPRAZOLE
  5. FAMOTIDINE [Concomitant]
     Active Substance: FAMOTIDINE
  6. TYLENOL [Concomitant]
     Active Substance: ACETAMINOPHEN
  7. GAS-X [Concomitant]
     Active Substance: DIMETHICONE
  8. SIMETHICONE (DIMETHICONE) [Concomitant]
     Active Substance: DIMETHICONE

REACTIONS (11)
  - Illness [None]
  - Insomnia [None]
  - Sinus pain [None]
  - Reflux laryngitis [None]
  - Pain [None]
  - Headache [None]
  - Dry mouth [None]
  - Salivary gland disorder [None]
  - Salivary hyposecretion [None]
  - Tooth erosion [None]
  - Nasal dryness [None]

NARRATIVE: CASE EVENT DATE: 20250902
